FAERS Safety Report 7099559-8 (Version None)
Quarter: 2010Q4

REPORT INFORMATION
  Report Type: 
  Country: None (occurrence: None)
  Receive Date: 20101105
  Receipt Date: 20101025
  Transmission Date: 20110411
  Serious: Yes (Hospitalization)
  Sender: FDA-Public Use
  Company Number: 1000017095

PATIENT
  Age: 72 Year
  Sex: Female

DRUGS (15)
  1. CITALOPRAM HYDROBROMIDE [Suspect]
     Indication: DEPRESSION
     Dosage: 20 MG (20 MG, 1 IN 1 D), INTRAVENOUS
     Route: 042
     Dates: start: 20091220, end: 20091221
  2. CITALOPRAM HYDROBROMIDE [Suspect]
     Indication: DEPRESSION
     Dosage: 20 MG (20 MG, 1 IN 1 D), INTRAVENOUS
     Route: 042
     Dates: start: 20091222, end: 20091229
  3. CITALOPRAM HYDROBROMIDE [Suspect]
     Indication: DEPRESSION
     Dosage: 20 MG (20 MG, 1 IN 1 D), INTRAVENOUS
     Route: 042
     Dates: start: 20091230, end: 20100118
  4. AMOXICILLIN [Suspect]
     Indication: BRONCHITIS
     Dosage: 2000 MG (500 MG, 4 IN 1 D), ORAL
     Route: 048
     Dates: start: 20100115, end: 20100125
  5. ATHYMIL (MIANSERIN HYDROCHLORIDE) (TABLETS) (MIANSERIN HYDROCHLORIDE) [Concomitant]
  6. TERCIAN (CYAMEMAZINE) (TABLETS) (CYAMEMAZINE) [Concomitant]
  7. MEPRONIZINE (MEPROBAMATE) [Concomitant]
  8. CRESTOR (ROSUVASTATIN) (TABLETS) (ROSUVASTATIN) [Concomitant]
  9. INEXIUM (ESOMEPRAZOLE MAGNESIUM) (TABLETS) (ESOMEPRAZOLE MAGNESIUM) [Concomitant]
  10. MIRTAZAPINE [Concomitant]
  11. ZOLPIDEM [Concomitant]
  12. NOCTRAN (CLORAZEPATE DIPOTASSIUM) (CLORAZEPATE DIPOTASSIUM) [Concomitant]
  13. TRANXENE [Concomitant]
  14. ATENOLOL [Concomitant]
  15. LEVOTHYROXINE SODIUM [Concomitant]

REACTIONS (1)
  - CYTOLYTIC HEPATITIS [None]
